FAERS Safety Report 7465192-9 (Version None)
Quarter: 2011Q2

REPORT INFORMATION
  Report Type: 
  Country: None (occurrence: None)
  Receive Date: 20110428
  Receipt Date: 20110413
  Transmission Date: 20111010
  Serious: Yes (Hospitalization, Other)
  Sender: FDA-Public Use
  Company Number: 2010004159

PATIENT
  Age: 63 Year
  Sex: Male
  Weight: 72 kg

DRUGS (5)
  1. ERLOTINIB HYDROCHLORIDE [Suspect]
     Indication: HEPATIC NEOPLASM MALIGNANT
     Dosage: 150 MG, QD, ORAL
     Route: 048
     Dates: start: 20100628, end: 20100811
  2. SORAFENIB TABLET [Suspect]
     Indication: HEPATIC NEOPLASM MALIGNANT
     Dosage: 400 MG, BID, ORAL
     Route: 048
     Dates: start: 20100628, end: 20100811
  3. BETALOC (METOPROLOL TARTRATE) [Concomitant]
  4. PREDUCTAL (TRIMETAZIDINE) [Concomitant]
  5. MONOPRIL [Concomitant]

REACTIONS (5)
  - LOSS OF CONSCIOUSNESS [None]
  - DERMATITIS [None]
  - VASCULITIS [None]
  - DRUG HYPERSENSITIVITY [None]
  - HYPOTENSION [None]
